FAERS Safety Report 13272102 (Version 4)
Quarter: 2018Q2

REPORT INFORMATION
  Report Type: Report from Study
  Country: CA (occurrence: CA)
  Receive Date: 20170227
  Receipt Date: 20180409
  Transmission Date: 20180711
  Serious: Yes (Hospitalization)
  Sender: FDA-Public Use
  Company Number: CA-B.I. PHARMACEUTICALS,INC./RIDGEFIELD-2016-BI-63007CN

PATIENT
  Age: 77 Year
  Sex: Male

DRUGS (9)
  1. OFEV [Suspect]
     Active Substance: NINTEDANIB
     Route: 048
     Dates: start: 20170702
  2. OFEV [Suspect]
     Active Substance: NINTEDANIB
     Indication: IDIOPATHIC PULMONARY FIBROSIS
     Route: 048
     Dates: start: 20160921
  3. AZITHROMYCIN ANHYDROUS. [Concomitant]
     Active Substance: AZITHROMYCIN ANHYDROUS
     Indication: PRODUCT USED FOR UNKNOWN INDICATION
     Route: 065
     Dates: start: 20160924
  4. OXYGEN. [Concomitant]
     Active Substance: OXYGEN
     Indication: PRODUCT USED FOR UNKNOWN INDICATION
     Dosage: 3L/MINUTE AT REST AND 6L/MINUTE WHEN EXERCISING AND WALKING
     Route: 065
  5. CORTISONE [Concomitant]
     Active Substance: CORTISONE\HYDROCORTISONE
     Indication: PRODUCT USED FOR UNKNOWN INDICATION
     Route: 065
  6. STATEX [Concomitant]
     Active Substance: MORPHINE SULFATE
     Indication: PRODUCT USED FOR UNKNOWN INDICATION
     Route: 065
  7. SENNOSIDE [Concomitant]
     Active Substance: SENNOSIDES
     Indication: PRODUCT USED FOR UNKNOWN INDICATION
     Route: 065
  8. LAX-A-DAY [Concomitant]
     Indication: PRODUCT USED FOR UNKNOWN INDICATION
     Route: 065
  9. SENOKOT [Concomitant]
     Active Substance: SENNOSIDES
     Indication: PRODUCT USED FOR UNKNOWN INDICATION
     Route: 065

REACTIONS (17)
  - Influenza [Recovered/Resolved]
  - Asthenia [Not Recovered/Not Resolved]
  - Mobility decreased [Not Recovered/Not Resolved]
  - Oxygen saturation decreased [Not Recovered/Not Resolved]
  - Cardiac pacemaker insertion [Recovered/Resolved]
  - Constipation [Not Recovered/Not Resolved]
  - Diarrhoea [Not Recovered/Not Resolved]
  - Arrhythmia [Unknown]
  - Dyspnoea [Not Recovered/Not Resolved]
  - Fall [Recovered/Resolved]
  - Gastrointestinal motility disorder [Not Recovered/Not Resolved]
  - Cough [Not Recovered/Not Resolved]
  - Bradycardia [Unknown]
  - Oxygen saturation increased [Unknown]
  - Overdose [Unknown]
  - Therapeutic response unexpected [Not Recovered/Not Resolved]
  - Depression [Not Recovered/Not Resolved]

NARRATIVE: CASE EVENT DATE: 20161125
